FAERS Safety Report 13110376 (Version 1)
Quarter: 2017Q1

REPORT INFORMATION
  Report Type: Spontaneous
  Country: US (occurrence: US)
  Receive Date: 20170112
  Receipt Date: 20170112
  Transmission Date: 20170428
  Serious: Yes (Other)
  Sender: FDA-Public Use
  Company Number: None

PATIENT
  Age: 59 Year
  Sex: Female
  Weight: 47.25 kg

DRUGS (11)
  1. VITAMIN D [Concomitant]
     Active Substance: CHOLECALCIFEROL
  2. DHEA [Concomitant]
     Active Substance: PRASTERONE
  3. BIOIDENTICAL HORMONES (ESTROGEN, PROGESTERONE, TESTOSTERONE) [Concomitant]
  4. ARMOUR THYROID [Concomitant]
     Active Substance: THYROID, PORCINE
  5. MELATONIN [Concomitant]
     Active Substance: MELATONIN
  6. XIIDRA [Suspect]
     Active Substance: LIFITEGRAST
     Indication: DRY EYE
     Route: 031
     Dates: start: 20160928, end: 20170112
  7. VITAMIN B [Concomitant]
     Active Substance: VITAMIN B
  8. COQ10 [Concomitant]
     Active Substance: UBIDECARENONE
  9. RED YEAST RICE [Concomitant]
     Active Substance: DIETARY SUPPLEMENT
  10. VITAMIN C [Concomitant]
     Active Substance: ASCORBIC ACID
  11. XANAX [Concomitant]
     Active Substance: ALPRAZOLAM

REACTIONS (7)
  - Dysgeusia [None]
  - Oropharyngeal pain [None]
  - Oral disorder [None]
  - Oral pain [None]
  - Abnormal loss of weight [None]
  - Oral mucosal discolouration [None]
  - Tongue discolouration [None]

NARRATIVE: CASE EVENT DATE: 20161101
